FAERS Safety Report 26099805 (Version 1)
Quarter: 2025Q4

REPORT INFORMATION
  Report Type: Spontaneous
  Country: AU (occurrence: AU)
  Receive Date: 20251128
  Receipt Date: 20251128
  Transmission Date: 20260117
  Serious: No
  Sender: ALKEM
  Company Number: AU-ALKEM LABORATORIES LIMITED-AU-ALKEM-2025-04436

PATIENT
  Age: 38 Year
  Sex: Female

DRUGS (1)
  1. OLANZAPINE [Suspect]
     Active Substance: OLANZAPINE
     Indication: Product used for unknown indication
     Dosage: UNK
     Route: 065

REACTIONS (8)
  - Malaise [Unknown]
  - Dysphagia [Unknown]
  - Dyspnoea [Unknown]
  - Pruritus [Unknown]
  - Sedation [Unknown]
  - Vomiting [Unknown]
  - Rash [Unknown]
  - Weight increased [Unknown]
